FAERS Safety Report 12474128 (Version 3)
Quarter: 2016Q3

REPORT INFORMATION
  Report Type: Report from Study
  Country: CA (occurrence: CA)
  Receive Date: 20160616
  Receipt Date: 20160809
  Transmission Date: 20161109
  Serious: Yes (Hospitalization, Disabling, Other)
  Sender: FDA-Public Use
  Company Number: CA-AMGEN-CANSL2016075177

PATIENT
  Age: 60 Year
  Sex: Female

DRUGS (12)
  1. FOLIC ACID. [Concomitant]
     Active Substance: FOLIC ACID
  2. PANTOPRAZOLE [Concomitant]
     Active Substance: PANTOPRAZOLE SODIUM
  3. TRAZODONE [Concomitant]
     Active Substance: TRAZODONE HYDROCHLORIDE
     Dosage: 150 MG, ONE AT BED TIME
  4. GABAPENTIN. [Concomitant]
     Active Substance: GABAPENTIN
     Dosage: 300 MG, UNK
  5. EFFEXOR [Concomitant]
     Active Substance: VENLAFAXINE HYDROCHLORIDE
     Dosage: 150 UNK, IN AM
  6. ZOPICLONE [Concomitant]
     Active Substance: ZOPICLONE
     Dosage: 7.5 MG, AT H.S
  7. ENBREL [Suspect]
     Active Substance: ETANERCEPT
     Indication: RHEUMATOID ARTHRITIS
     Dosage: 50 MG, QWK
     Route: 065
     Dates: start: 20160601
  8. METHOTREXATE (METHOTREXATE SODIUM) [Concomitant]
     Active Substance: METHOTREXATE SODIUM
  9. SIMVASTATIN. [Concomitant]
     Active Substance: SIMVASTATIN
     Dosage: 80 MG, UNK
  10. EFFEXOR [Concomitant]
     Active Substance: VENLAFAXINE HYDROCHLORIDE
     Dosage: 75 MG, IN AM
  11. CLONAZEPAM. [Concomitant]
     Active Substance: CLONAZEPAM
     Dosage: 2 MG, UNK
  12. CO BETAHISTINE [Concomitant]
     Dosage: 16 MG, BID

REACTIONS (21)
  - Sedation [Unknown]
  - Disorientation [Unknown]
  - Nausea [Unknown]
  - Intervertebral disc protrusion [Unknown]
  - Hypoaesthesia [Unknown]
  - Vision blurred [Unknown]
  - Fatigue [Recovering/Resolving]
  - Migraine [Unknown]
  - Blood pressure increased [Unknown]
  - Pain [Unknown]
  - Suicidal ideation [Unknown]
  - Illness anxiety disorder [Unknown]
  - Chest pain [Unknown]
  - Headache [Unknown]
  - Ear pain [Unknown]
  - Eye pain [Not Recovered/Not Resolved]
  - Photophobia [Unknown]
  - Rash [Not Recovered/Not Resolved]
  - Paraesthesia [Unknown]
  - Neck pain [Unknown]
  - Asthenia [Unknown]

NARRATIVE: CASE EVENT DATE: 2016
